FAERS Safety Report 5471434-1 (Version None)
Quarter: 2007Q3

REPORT INFORMATION
  Report Type: 
  Country: None (occurrence: None)
  Receive Date: 20070928
  Receipt Date: 20061017
  Transmission Date: 20080115
  Serious: No
  Sender: FDA-Public Use
  Company Number: US-BRISTOL-MYERS SQUIBB COMPANY-13544457

PATIENT
  Sex: Male

DRUGS (2)
  1. DEFINITY [Suspect]
     Indication: ECHOCARDIOGRAM
     Dosage: 1.5 CC OF PERFLUTREN IN 8.5CC OF NORMAL SALINE
     Route: 040
  2. SODIUM CHLORIDE [Concomitant]
     Indication: ECHOCARDIOGRAM
     Route: 042

REACTIONS (2)
  - ARTHRALGIA [None]
  - MALAISE [None]
